FAERS Safety Report 8456697-2 (Version None)
Quarter: 2012Q2

REPORT INFORMATION
  Report Type: 
  Country: None (occurrence: None)
  Receive Date: 20120621
  Receipt Date: 20120613
  Transmission Date: 20120825
  Serious: Yes (Other)
  Sender: FDA-Public Use
  Company Number: DE-B.I. PHARMACEUTICALS,INC./RIDGEFIELD-2012-EU-03196BY

PATIENT
  Sex: Male

DRUGS (1)
  1. TELMISARTAN [Suspect]
     Dosage: 40 MG
     Route: 065

REACTIONS (1)
  - UROSEPSIS [None]
